FAERS Safety Report 8492794-3 (Version None)
Quarter: 2012Q3

REPORT INFORMATION
  Report Type: 
  Country: None (occurrence: None)
  Receive Date: 20120706
  Receipt Date: 20120627
  Transmission Date: 20120928
  Serious: Yes (Hospitalization)
  Sender: FDA-Public Use
  Company Number: SE-PFIZER INC-2012161380

PATIENT
  Age: 17 Year
  Sex: Female

DRUGS (6)
  1. YASMIN [Concomitant]
     Indication: PRODUCT USED FOR UNKNOWN INDICATION
     Route: 065
  2. IBUPROFEN [Suspect]
     Indication: BACK PAIN
     Dosage: 2.4 G A DAY
     Route: 048
     Dates: start: 20120404, end: 20120407
  3. CIPROFLOXACIN [Suspect]
     Indication: DIARRHOEA
     Dates: start: 20120407, end: 20120410
  4. ALVEDON [Concomitant]
     Indication: PRODUCT USED FOR UNKNOWN INDICATION
  5. TRAMADOL HCL [Concomitant]
     Indication: PRODUCT USED FOR UNKNOWN INDICATION
  6. TETRALYSAL [Concomitant]
     Indication: PRODUCT USED FOR UNKNOWN INDICATION

REACTIONS (2)
  - RENAL FAILURE [None]
  - DIARRHOEA [None]
